FAERS Safety Report 6996317-7 (Version None)
Quarter: 2010Q3

REPORT INFORMATION
  Report Type: 
  Country: None (occurrence: None)
  Receive Date: 20100918
  Receipt Date: 20090323
  Transmission Date: 20110219
  Serious: No
  Sender: FDA-Public Use
  Company Number: US-WYE-H08335909

PATIENT
  Sex: Male
  Weight: 129.39 kg

DRUGS (5)
  1. EFFEXOR XR [Suspect]
     Indication: DEPRESSION
     Route: 048
     Dates: start: 20080601
  2. EFFEXOR XR [Suspect]
     Route: 048
  3. GLIPIZIDE [Concomitant]
  4. VITAMIN D [Concomitant]
  5. SIMVASTATIN [Concomitant]

REACTIONS (3)
  - AMNESIA [None]
  - APHASIA [None]
  - UNEVALUABLE EVENT [None]
